FAERS Safety Report 14631467 (Version 1)
Quarter: 2018Q1

REPORT INFORMATION
  Report Type: Spontaneous
  Country: US (occurrence: US)
  Receive Date: 20180313
  Receipt Date: 20180313
  Transmission Date: 20180509
  Serious: No
  Sender: FDA-Public Use
  Company Number: US-009507513-1802USA013720

PATIENT
  Age: 44 Year
  Sex: Female
  Weight: 89.8 kg

DRUGS (2)
  1. NUVARING [Suspect]
     Active Substance: ETHINYL ESTRADIOL\ETONOGESTREL
     Indication: CONTRACEPTION
  2. NUVARING [Suspect]
     Active Substance: ETHINYL ESTRADIOL\ETONOGESTREL
     Indication: MENSTRUATION IRREGULAR
     Dosage: 3 WEEKS IN 1 WEEK OUT
     Route: 067
     Dates: start: 201710, end: 20180115

REACTIONS (2)
  - Coital bleeding [Unknown]
  - Depression [Unknown]

NARRATIVE: CASE EVENT DATE: 20171119
